FAERS Safety Report 14140318 (Version 1)
Quarter: 2017Q4

REPORT INFORMATION
  Report Type: Spontaneous
  Country: US (occurrence: US)
  Receive Date: 20171030
  Receipt Date: 20171030
  Transmission Date: 20180321
  Serious: No
  Sender: FDA-Public Use
  Company Number: US-ACCORD-056973

PATIENT
  Age: 34 Year
  Sex: Male
  Weight: 113.4 kg

DRUGS (1)
  1. ESCITALOPRAM ACCORD [Suspect]
     Active Substance: ESCITALOPRAM OXALATE
     Indication: DEPRESSION
     Dosage: ONCE A DAY
     Route: 048

REACTIONS (3)
  - Eye pain [Unknown]
  - Headache [Unknown]
  - Feeling abnormal [Unknown]
